FAERS Safety Report 21144181 (Version 1)
Quarter: 2022Q3

REPORT INFORMATION
  Report Type: Spontaneous
  Country: US (occurrence: None)
  Receive Date: 20220728
  Receipt Date: 20220728
  Transmission Date: 20221027
  Serious: No
  Sender: FDA-Public Use
  Company Number: None

PATIENT
  Age: 47 Year
  Sex: Female

DRUGS (1)
  1. HUMIRA [Suspect]
     Active Substance: ADALIMUMAB
     Indication: Rheumatoid arthritis
     Dosage: INJECT 40 MG SUBCUTANEOUSLY EVERY 2 WEEKS IN THE ABDOMEN OR THIGHT ROTATING  INJECTION SITE AS  ?
     Route: 058
     Dates: start: 202207

REACTIONS (3)
  - Bipolar disorder [None]
  - Post-traumatic stress disorder [None]
  - Pain [None]
